FAERS Safety Report 19732233 (Version 2)
Quarter: 2021Q3

REPORT INFORMATION
  Report Type: Spontaneous
  Country: GB (occurrence: GB)
  Receive Date: 20210820
  Receipt Date: 20210823
  Transmission Date: 20211014
  Serious: No
  Sender: FDA-Public Use
  Company Number: GB-JAZZ-2021-GB-005655

PATIENT
  Age: 61 Year
  Sex: Male

DRUGS (6)
  1. ACYCLOVIR [ACICLOVIR] [Concomitant]
     Active Substance: ACYCLOVIR
  2. VYXEOS [Suspect]
     Active Substance: CYTARABINE\DAUNORUBICIN
     Indication: ACUTE MYELOID LEUKAEMIA
     Dosage: 44 MG/100 MG POWDER FOR CONCENTRATE FOR SOLUTION FOR INFUSION (144 MG METERED SQUARE)
     Route: 042
     Dates: start: 20210322
  3. VORICONAZOLE. [Concomitant]
     Active Substance: VORICONAZOLE
  4. COLCHICINE. [Concomitant]
     Active Substance: COLCHICINE
  5. ALLOPURINOL. [Concomitant]
     Active Substance: ALLOPURINOL
  6. ENOXAPARIN [Concomitant]
     Active Substance: ENOXAPARIN

REACTIONS (1)
  - Product administration interrupted [Unknown]

NARRATIVE: CASE EVENT DATE: 20210322
